FAERS Safety Report 18684245 (Version 1)
Quarter: 2020Q4

REPORT INFORMATION
  Report Type: Spontaneous
  Country: GB (occurrence: GB)
  Receive Date: 20201230
  Receipt Date: 20201230
  Transmission Date: 20210114
  Serious: Yes (Other)
  Sender: FDA-Public Use
  Company Number: GB-TEVA-2020-GB-1862959

PATIENT
  Age: 75 Year
  Sex: Male
  Weight: 56 kg

DRUGS (9)
  1. APIXABAN [Concomitant]
     Active Substance: APIXABAN
     Dosage: 4 DOSAGE FORMS DAILY; AT 9AM AND 10PM
     Dates: start: 20200601
  2. PARACETAMOL [Concomitant]
     Active Substance: ACETAMINOPHEN
     Dosage: 16 DOSAGE FORMS DAILY; AT 9AM, 2PM, ...
     Dates: start: 20200601
  3. LUVENTA XL [Concomitant]
     Dosage: 1 DOSAGE FORMS DAILY; (GALANTAMINE) AT 6PM
     Dates: start: 20200601
  4. RISPERIDONE. [Suspect]
     Active Substance: RISPERIDONE
     Dosage: 1MG
     Dates: start: 20191001
  5. CITALOPRAM [Concomitant]
     Active Substance: CITALOPRAM HYDROBROMIDE
     Dosage: 1 DOSAGE FORMS DAILY; AT 9AM
     Dates: start: 20200828
  6. ATENOLOL. [Concomitant]
     Active Substance: ATENOLOL
     Dosage: 1 DOSAGE FORMS DAILY; EACH MORNING AT 9AM
     Dates: start: 20200601
  7. IRBESARTAN. [Concomitant]
     Active Substance: IRBESARTAN
     Dosage: 1 DOSAGE FORMS DAILY; AT 9AM
     Dates: start: 20200601
  8. ATORVASTATIN [Concomitant]
     Active Substance: ATORVASTATIN
     Dosage: 1 DOSAGE FORMS DAILY; AT 10PM
     Dates: start: 20200601
  9. DIGOXIN. [Concomitant]
     Active Substance: DIGOXIN
     Dosage: 1 DOSAGE FORMS DAILY; AT 9AM
     Dates: start: 20200601

REACTIONS (2)
  - Gait inability [Unknown]
  - Lethargy [Unknown]

NARRATIVE: CASE EVENT DATE: 20200727
